FAERS Safety Report 14968549 (Version 1)
Quarter: 2018Q2

REPORT INFORMATION
  Report Type: Spontaneous
  Country: US (occurrence: US)
  Receive Date: 20180511
  Receipt Date: 20180511
  Transmission Date: 20180711
  Serious: No
  Sender: FDA-Public Use
  Company Number: None

PATIENT
  Age: 6 Year
  Sex: Male
  Weight: 30 kg

DRUGS (2)
  1. STRATTERA [Concomitant]
     Active Substance: ATOMOXETINE HYDROCHLORIDE
     Dates: start: 20180426, end: 20180511
  2. STRATTERA (GENERIC) [Suspect]
     Active Substance: ATOMOXETINE HYDROCHLORIDE
     Indication: ATTENTION DEFICIT/HYPERACTIVITY DISORDER
     Route: 048

REACTIONS (6)
  - Restlessness [None]
  - Psychomotor hyperactivity [None]
  - Aggression [None]
  - Drug ineffective [None]
  - Impulsive behaviour [None]
  - Product substitution issue [None]

NARRATIVE: CASE EVENT DATE: 20180511
